FAERS Safety Report 7356623-3 (Version None)
Quarter: 2011Q1

REPORT INFORMATION
  Report Type: 
  Country: None (occurrence: None)
  Receive Date: 20110316
  Receipt Date: 20110304
  Transmission Date: 20110831
  Serious: Yes (Other)
  Sender: FDA-Public Use
  Company Number: PHHY2011IT18124

PATIENT
  Sex: Female

DRUGS (2)
  1. CARBOPLATIN [Suspect]
     Indication: OVARIAN CANCER
     Dosage: 600 MG, UNK
     Dates: start: 20100706, end: 20100803
  2. DEXAMETHASONE [Concomitant]
     Dosage: UNK
     Dates: start: 20100803, end: 20100803

REACTIONS (3)
  - FEELING HOT [None]
  - DYSPNOEA [None]
  - ERYTHEMA [None]
